FAERS Safety Report 4650537-5 (Version None)
Quarter: 2005Q2

REPORT INFORMATION
  Report Type: 
  Country: None (occurrence: None)
  Receive Date: 20050429
  Receipt Date: 20050425
  Transmission Date: 20051028
  Serious: Yes (Death, Life-Threatening)
  Sender: FDA-Public Use
  Company Number: 200509327

PATIENT
  Age: 72 Year
  Sex: Male

DRUGS (3)
  1. STREPTASE [Suspect]
     Indication: ACUTE MYOCARDIAL INFARCTION
     Dosage: 1.5 MIU DAILY IV
     Route: 042
     Dates: start: 20040527, end: 20040527
  2. ASPIRIN [Suspect]
     Indication: ACUTE MYOCARDIAL INFARCTION
     Dosage: 250 MG DAILY PO
     Route: 048
     Dates: start: 20040527, end: 20040527
  3. ENOXAPARIN OR PLACEBO VS HEPARIN OR PLACEBO [Suspect]
     Indication: ACUTE MYOCARDIAL INFARCTION
     Dosage: IV
     Route: 042
     Dates: start: 20040527, end: 20040527

REACTIONS (10)
  - APNOEA [None]
  - CARDIAC FAILURE CONGESTIVE [None]
  - CARDIO-RESPIRATORY ARREST [None]
  - CARDIOGENIC SHOCK [None]
  - CARDIOPULMONARY FAILURE [None]
  - DIABETIC COMA [None]
  - HAEMATOCRIT DECREASED [None]
  - HAEMATURIA [None]
  - HYPOTENSION [None]
  - RENAL FAILURE [None]
